FAERS Safety Report 10360466 (Version 1)
Quarter: 2014Q3

REPORT INFORMATION
  Report Type: Spontaneous
  Country: GB (occurrence: GB)
  Receive Date: 20140804
  Receipt Date: 20140804
  Transmission Date: 20150326
  Serious: Yes (Other)
  Sender: FDA-Public Use
  Company Number: PHHY2014GB092427

PATIENT
  Age: 46 Year
  Sex: Female
  Weight: 152 kg

DRUGS (4)
  1. ORAMORPH SR SUSTAINED RELEASE [Interacting]
     Active Substance: MORPHINE SULFATE
     Indication: HEADACHE
     Dosage: 20 ML, Q4H
     Dates: start: 20140527, end: 20140625
  2. TRAMADOL [Interacting]
     Active Substance: TRAMADOL
     Dosage: 200 MG, BID
     Dates: start: 20140601, end: 20140627
  3. TRAMADOL [Suspect]
     Active Substance: TRAMADOL
     Indication: PAIN
     Dosage: 100 MG, QD
     Dates: end: 20140531
  4. WARFARIN [Interacting]
     Active Substance: WARFARIN

REACTIONS (7)
  - Drug interaction [Unknown]
  - Convulsion [Not Recovered/Not Resolved]
  - Nausea [Not Recovered/Not Resolved]
  - Abdominal pain lower [Not Recovered/Not Resolved]
  - Headache [Not Recovered/Not Resolved]
  - Dysphemia [Not Recovered/Not Resolved]
  - Aphasia [Not Recovered/Not Resolved]
